FAERS Safety Report 21138498 (Version 1)
Quarter: 2022Q3

REPORT INFORMATION
  Report Type: Spontaneous
  Country: US (occurrence: US)
  Receive Date: 20220727
  Receipt Date: 20220727
  Transmission Date: 20221027
  Serious: Yes (Other)
  Sender: FDA-Public Use
  Company Number: US-BAYER-2022A102413

PATIENT
  Age: 58 Year
  Sex: Male

DRUGS (2)
  1. BAYER LOW DOSE [Suspect]
     Active Substance: ASPIRIN
     Indication: Prophylaxis
     Dosage: UNK, 20 YEAR
     Route: 048
  2. ASPIRIN [Suspect]
     Active Substance: ASPIRIN
     Dosage: UNK

REACTIONS (6)
  - Coronary artery occlusion [Recovering/Resolving]
  - Coronary artery bypass [Recovering/Resolving]
  - Dyspnoea [Unknown]
  - Chest pain [Unknown]
  - Incorrect product administration duration [None]
  - Drug effective for unapproved indication [None]
